FAERS Safety Report 6559430-4 (Version None)
Quarter: 2010Q1

REPORT INFORMATION
  Report Type: 
  Country: None (occurrence: None)
  Receive Date: 20100129
  Receipt Date: 20090831
  Transmission Date: 20100710
  Serious: No
  Sender: FDA-Public Use
  Company Number: US-ABBOTT-09P-163-0594453-00

PATIENT
  Sex: Male
  Weight: 100.79 kg

DRUGS (3)
  1. HUMIRA [Suspect]
     Indication: PSORIASIS
     Route: 058
     Dates: start: 20070901
  2. HUMIRA [Suspect]
     Route: 050
     Dates: start: 20070101, end: 20080101
  3. HUMIRA [Suspect]
     Indication: PSORIASIS
     Route: 058
     Dates: start: 20081101

REACTIONS (2)
  - PSORIASIS [None]
  - RASH MACULAR [None]
